FAERS Safety Report 4962444-9 (Version None)
Quarter: 2006Q1

REPORT INFORMATION
  Report Type: 
  Country: None (occurrence: None)
  Receive Date: 20060329
  Receipt Date: 20060314
  Transmission Date: 20060701
  Serious: No
  Sender: FDA-Public Use
  Company Number: 006870

PATIENT
  Age: 19 Year
  Sex: Female

DRUGS (1)
  1. JUNEL 1.5/30 [Suspect]
     Indication: ORAL CONTRACEPTION
     Dosage: 1 TABLET, QD, ORAL
     Route: 048
     Dates: start: 20060309, end: 20060315

REACTIONS (5)
  - CRYING [None]
  - DISTURBANCE IN ATTENTION [None]
  - INAPPROPRIATE AFFECT [None]
  - INSOMNIA [None]
  - MEMORY IMPAIRMENT [None]
